FAERS Safety Report 6931297-1 (Version None)
Quarter: 2010Q3

REPORT INFORMATION
  Report Type: 
  Country: None (occurrence: None)
  Receive Date: 20100818
  Receipt Date: 20100806
  Transmission Date: 20110219
  Serious: Yes (Hospitalization)
  Sender: FDA-Public Use
  Company Number: JP-ELI_LILLY_AND_COMPANY-JP201008001646

PATIENT
  Sex: Male

DRUGS (1)
  1. HUMALOG MIX 50/50 [Suspect]
     Dosage: UNK, UNKNOWN
     Route: 058
     Dates: start: 20091201

REACTIONS (1)
  - INJURY [None]
